FAERS Safety Report 4452303-2 (Version None)
Quarter: 2004Q3

REPORT INFORMATION
  Report Type: 
  Country: None (occurrence: None)
  Receive Date: 20040917
  Receipt Date: 20040907
  Transmission Date: 20050211
  Serious: Yes (Death)
  Sender: FDA-Public Use
  Company Number: JP-ROCHE-379814

PATIENT
  Age: 63 Year
  Sex: Female

DRUGS (10)
  1. VESANOID [Suspect]
     Indication: ACUTE PROMYELOCYTIC LEUKAEMIA
     Route: 048
     Dates: start: 20040828, end: 20040906
  2. NAFAMOSTAT MESILATE [Suspect]
     Route: 042
     Dates: start: 20040828, end: 20040906
  3. CYTARABINE [Concomitant]
     Route: 042
     Dates: start: 20040830, end: 20040906
  4. IDAMYCIN [Concomitant]
     Route: 042
     Dates: start: 20040830, end: 20040906
  5. ZYLORIC [Concomitant]
     Route: 048
     Dates: start: 20040828, end: 20040906
  6. POLYMYXIN B SULFATE [Concomitant]
     Route: 048
     Dates: start: 20040828, end: 20040906
  7. FUNGIZONE [Concomitant]
     Route: 048
     Dates: start: 20040828, end: 20040906
  8. MUCOSTA [Concomitant]
     Route: 048
     Dates: start: 20040828, end: 20040906
  9. NORVASC [Concomitant]
     Route: 048
     Dates: start: 20040828, end: 20040906
  10. NEUTROGIN [Concomitant]
     Route: 042
     Dates: start: 20040827, end: 20040906

REACTIONS (2)
  - HYPERKALAEMIA [None]
  - RESPIRATORY FAILURE [None]
